FAERS Safety Report 5851891-9 (Version None)
Quarter: 2008Q3

REPORT INFORMATION
  Report Type: 
  Country: None (occurrence: None)
  Receive Date: 20080819
  Receipt Date: 20070828
  Transmission Date: 20090109
  Serious: Yes (Hospitalization, Other)
  Sender: FDA-Public Use
  Company Number: 2007BI019054

PATIENT
  Age: 56 Year
  Sex: Female
  Weight: 68 kg

DRUGS (6)
  1. AVONEX [Suspect]
     Indication: MULTIPLE SCLEROSIS
     Dosage: ; IM, ; IM, ' QW; IM
     Route: 030
     Dates: start: 20030301, end: 20070501
  2. AVONEX [Suspect]
     Indication: MULTIPLE SCLEROSIS
     Dosage: ; IM, ; IM, ' QW; IM
     Route: 030
     Dates: start: 20070501, end: 20070821
  3. AVONEX [Suspect]
     Indication: MULTIPLE SCLEROSIS
     Dosage: ; IM, ; IM, ' QW; IM
     Route: 030
     Dates: start: 20020401
  4. PREDNISONE TAB [Concomitant]
  5. THIAMINE HCL [Concomitant]
  6. OSTEOCALCIO [Concomitant]

REACTIONS (18)
  - BEDRIDDEN [None]
  - BLOOD GLUCOSE INCREASED [None]
  - BODY TEMPERATURE DECREASED [None]
  - COMA [None]
  - CONVULSION [None]
  - EYE DISORDER [None]
  - HEART RATE DECREASED [None]
  - HYPERHIDROSIS [None]
  - HYPOPHAGIA [None]
  - LETHARGY [None]
  - MOVEMENT DISORDER [None]
  - MULTIPLE SCLEROSIS RELAPSE [None]
  - OSTEOPOROSIS [None]
  - PARALYSIS [None]
  - PYREXIA [None]
  - RESPIRATORY TRACT INFECTION [None]
  - SOMNOLENCE [None]
  - SPEECH DISORDER [None]
